FAERS Safety Report 23957607 (Version 1)
Quarter: 2024Q2

REPORT INFORMATION
  Report Type: Report from Study
  Country: IN (occurrence: IN)
  Receive Date: 20240610
  Receipt Date: 20240610
  Transmission Date: 20240716
  Serious: Yes (Other)
  Sender: FDA-Public Use
  Company Number: IN-ASTELLAS-2022US016296

PATIENT
  Age: 49 Year
  Sex: Male

DRUGS (8)
  1. ISAVUCONAZOLE [Suspect]
     Active Substance: ISAVUCONAZOLE
     Indication: Mucormycosis
     Route: 042
     Dates: start: 20220105
  2. ISAVUCONAZOLE [Suspect]
     Active Substance: ISAVUCONAZOLE
     Route: 042
     Dates: start: 20220107
  3. ISAVUCONAZOLE [Suspect]
     Active Substance: ISAVUCONAZOLE
     Indication: Mucormycosis
     Route: 048
     Dates: start: 20220117
  4. ISAVUCONAZOLE [Suspect]
     Active Substance: ISAVUCONAZOLE
     Dosage: 200 MG, ONCE DAILY (2 100MG CAPSULE IN THE MORNING X 6 MONTHS)
     Route: 065
  5. LEVETIRACETAM [Concomitant]
     Active Substance: LEVETIRACETAM
     Indication: Product used for unknown indication
     Dosage: 500 UNK, UNKNOWN FREQ.
     Route: 065
  6. CLOPIDOGREL [Concomitant]
     Active Substance: CLOPIDOGREL BISULFATE
     Indication: Product used for unknown indication
     Dosage: 75 UNK, UNKNOWN FREQ.
     Route: 065
  7. DOMPERIDONE\ESOMEPRAZOLE MAGNESIUM [Concomitant]
     Active Substance: DOMPERIDONE\ESOMEPRAZOLE MAGNESIUM
     Indication: Product used for unknown indication
     Dosage: UNK UNK, UNKNOWN FREQ.
     Route: 065
  8. ROZAVEL [Concomitant]
     Indication: Product used for unknown indication
     Route: 065

REACTIONS (12)
  - Bulbar palsy [Unknown]
  - Nasal crusting [Unknown]
  - Blood pressure increased [Unknown]
  - Sinusitis [Unknown]
  - Speech disorder [Unknown]
  - Nervous system disorder [Unknown]
  - Weight increased [Unknown]
  - Protein urine present [Unknown]
  - Cough [Unknown]
  - Vomiting [Unknown]
  - Constipation [Unknown]
  - Drug ineffective [Unknown]

NARRATIVE: CASE EVENT DATE: 20220414
